FAERS Safety Report 24728486 (Version 3)
Quarter: 2025Q1

REPORT INFORMATION
  Report Type: Report from Study
  Country: CA (occurrence: CA)
  Receive Date: 20241212
  Receipt Date: 20250326
  Transmission Date: 20250409
  Serious: Yes (Hospitalization)
  Sender: AMGEN
  Company Number: CA-AMGEN-CANSL2024093108

PATIENT
  Age: 41 Year
  Sex: Male
  Weight: 58.9 kg

DRUGS (3)
  1. MVASI [Suspect]
     Active Substance: BEVACIZUMAB-AWWB
     Indication: Hereditary haemorrhagic telangiectasia
     Dosage: 5 MILLIGRAM/KILOGRAM, QMO
     Route: 065
     Dates: start: 20240409
  2. MVASI [Suspect]
     Active Substance: BEVACIZUMAB-AWWB
     Dosage: 300 MILLIGRAM, QMO
     Route: 065
  3. MVASI [Suspect]
     Active Substance: BEVACIZUMAB-AWWB
     Route: 065

REACTIONS (10)
  - Sepsis [Recovered/Resolved]
  - Staphylococcal infection [Unknown]
  - Osteomyelitis [Recovered/Resolved]
  - Feeling hot [Recovered/Resolved]
  - Palpitations [Recovered/Resolved]
  - Epistaxis [Unknown]
  - Off label use [Unknown]
  - Cystitis [Unknown]
  - Heart rate increased [Unknown]
  - Tooth disorder [Unknown]

NARRATIVE: CASE EVENT DATE: 20240409
